FAERS Safety Report 10467908 (Version 1)
Quarter: 2014Q3

REPORT INFORMATION
  Report Type: Spontaneous
  Country: US (occurrence: US)
  Receive Date: 20140922
  Receipt Date: 20140922
  Transmission Date: 20150326
  Serious: Yes (Hospitalization)
  Sender: FDA-Public Use
  Company Number: US-PFIZER INC-2014254843

PATIENT
  Sex: Female
  Weight: 81.63 kg

DRUGS (4)
  1. HUMIRA [Suspect]
     Active Substance: ADALIMUMAB
     Indication: PSORIASIS
     Dosage: 40 MG, UNK (40 MG,1 IN 2 WK)
     Route: 065
     Dates: start: 2011, end: 201407
  2. SIMVASTATIN. [Concomitant]
     Active Substance: SIMVASTATIN
     Indication: BLOOD CHOLESTEROL INCREASED
     Dosage: UNK
  3. HYDROCHLOROTHIAZIDE. [Concomitant]
     Active Substance: HYDROCHLOROTHIAZIDE
     Indication: HYPERTENSION
     Dosage: UNK
  4. TESSALON [Suspect]
     Active Substance: BENZONATATE
     Indication: PNEUMONIA
     Dosage: UNK
     Route: 065
     Dates: start: 2013, end: 2013

REACTIONS (11)
  - Dyspnoea [Recovered/Resolved]
  - Eye pain [Unknown]
  - Vision blurred [Unknown]
  - Hypoaesthesia [Unknown]
  - Muscular weakness [Unknown]
  - Psoriasis [Unknown]
  - Musculoskeletal stiffness [Unknown]
  - Cyanosis [Recovered/Resolved]
  - Pneumonia [Recovered/Resolved]
  - Paraesthesia [Unknown]
  - Hypoaesthesia [Unknown]

NARRATIVE: CASE EVENT DATE: 2013
